FAERS Safety Report 7020519-7 (Version None)
Quarter: 2010Q3

REPORT INFORMATION
  Report Type: 
  Country: None (occurrence: None)
  Receive Date: 20100929
  Receipt Date: 20091208
  Transmission Date: 20110219
  Serious: No
  Sender: FDA-Public Use
  Company Number: A0834120A

PATIENT
  Age: 6 Year
  Sex: Female

DRUGS (3)
  1. LAMICTAL [Suspect]
     Dosage: 5MG TWICE PER DAY
     Route: 048
     Dates: start: 20091101
  2. DEPAKOTE [Concomitant]
  3. SINGULAIR [Concomitant]

REACTIONS (1)
  - WEIGHT INCREASED [None]
